FAERS Safety Report 18842992 (Version 1)
Quarter: 2021Q1

REPORT INFORMATION
  Report Type: Report from Study
  Country: AU (occurrence: AU)
  Receive Date: 20210203
  Receipt Date: 20210203
  Transmission Date: 20210419
  Serious: No
  Sender: FDA-Public Use
  Company Number: AU-EXELIXIS-CABO-19025981

PATIENT
  Age: 78 Year
  Sex: Male
  Weight: 59 kg

DRUGS (14)
  1. MORPHINE [Concomitant]
     Active Substance: MORPHINE
     Dosage: UNK
  2. CABOMETYX [Suspect]
     Active Substance: CABOZANTINIB S-MALATE
     Indication: HEPATOCELLULAR CARCINOMA
     Dosage: 60 MG, QD
     Route: 048
     Dates: start: 20191218, end: 20200109
  3. CABOMETYX [Suspect]
     Active Substance: CABOZANTINIB S-MALATE
     Dosage: 20 MG
     Route: 048
     Dates: end: 202006
  4. CENTRUM [Concomitant]
     Active Substance: VITAMINS
     Dosage: UNK
  5. RISEDRONATE SODIUM. [Concomitant]
     Active Substance: RISEDRONATE SODIUM
     Indication: OSTEOPOROSIS
     Dosage: UNK
  6. CALCIUM PLUS WITH MAGNESIUM + VITAMIN D [Concomitant]
     Dosage: UNK
  7. LERCANIDIPINE [Concomitant]
     Active Substance: LERCANIDIPINE
     Indication: HYPERTENSION
     Dosage: UNK
  8. MULTIVITAMIN [Concomitant]
     Active Substance: VITAMINS
     Dosage: UNK
  9. RISPERIDONE. [Concomitant]
     Active Substance: RISPERIDONE
     Dosage: UNK
  10. CABOMETYX [Suspect]
     Active Substance: CABOZANTINIB S-MALATE
     Dosage: 40 MG
     Route: 048
     Dates: start: 20200109
  11. CABOMETYX [Suspect]
     Active Substance: CABOZANTINIB S-MALATE
     Dosage: 40 MG, QD
     Route: 048
     Dates: start: 20200207
  12. PRAZOSIN HCL [Concomitant]
     Active Substance: PRAZOSIN HYDROCHLORIDE
     Indication: HYPERTENSION
     Dosage: UNK
  13. ATENOLOL. [Concomitant]
     Active Substance: ATENOLOL
     Indication: HYPERTENSION
     Dosage: UNK
  14. PARACETAMOL [Concomitant]
     Active Substance: ACETAMINOPHEN
     Indication: PAIN
     Dosage: UNK

REACTIONS (4)
  - Off label use [Unknown]
  - Haemoglobin abnormal [Recovering/Resolving]
  - Palmar-plantar erythrodysaesthesia syndrome [Recovering/Resolving]
  - Fatigue [Not Recovered/Not Resolved]

NARRATIVE: CASE EVENT DATE: 202001
